FAERS Safety Report 6054179-9 (Version None)
Quarter: 2009Q1

REPORT INFORMATION
  Report Type: 
  Country: None (occurrence: None)
  Receive Date: 20090127
  Receipt Date: 20090119
  Transmission Date: 20090719
  Serious: Yes (Death)
  Sender: FDA-Public Use
  Company Number: DE-TEVA-184120ISR

PATIENT
  Age: 63 Year
  Sex: Female

DRUGS (4)
  1. FLUDARABINE [Suspect]
     Indication: T-CELL LYMPHOMA
  2. ALEMTUZUMAB [Suspect]
     Indication: T-CELL LYMPHOMA
  3. CYCLOPHOSPHAMIDE [Concomitant]
     Indication: T-CELL LYMPHOMA
  4. DOXORUBICIN HCL [Concomitant]
     Indication: T-CELL LYMPHOMA

REACTIONS (1)
  - B-CELL LYMPHOMA [None]
